FAERS Safety Report 24680441 (Version 1)
Quarter: 2024Q4

REPORT INFORMATION
  Report Type: Spontaneous
  Country: CH (occurrence: CH)
  Receive Date: 20241129
  Receipt Date: 20241129
  Transmission Date: 20250114
  Serious: Yes (Other)
  Sender: NOVO NORDISK
  Company Number: None

PATIENT
  Age: 45 Year
  Sex: Male
  Weight: 170 kg

DRUGS (12)
  1. WEGOVY [Interacting]
     Active Substance: SEMAGLUTIDE
     Dosage: 1.7 MG, QW
     Route: 058
     Dates: end: 20240818
  2. WEGOVY [Interacting]
     Active Substance: SEMAGLUTIDE
     Indication: Obesity
     Dosage: INTRODUCED AT A PROGRESSIVE DOSAGE
     Route: 058
     Dates: start: 20240515
  3. SINTROM [Concomitant]
     Active Substance: ACENOCOUMAROL
     Indication: Venous thrombosis
     Dosage: 3 MG, QD
     Route: 048
     Dates: start: 1994, end: 20240822
  4. SINTROM [Concomitant]
     Active Substance: ACENOCOUMAROL
     Dosage: 5 MG, QD
     Route: 048
     Dates: end: 20240822
  5. SINTROM [Concomitant]
     Active Substance: ACENOCOUMAROL
     Dosage: 4 MG, QD
     Route: 048
     Dates: start: 20240816
  6. LERCANIDIPINE [Concomitant]
     Active Substance: LERCANIDIPINE
     Indication: Hypertension
     Dosage: 10 MG, QD
     Route: 048
     Dates: start: 20240910
  7. IRBESARTAN [Concomitant]
     Active Substance: IRBESARTAN
     Indication: Hypertension
     Dosage: 300 MG, QD
     Route: 048
     Dates: start: 20240915
  8. PSYLLIUM [PLANTAGO INDICA] [Concomitant]
     Indication: Intestinal transit time
     Dosage: UNK
  9. ACENOCOUMAROL [Interacting]
     Active Substance: ACENOCOUMAROL
     Dosage: 4 MG, QD
     Dates: start: 20240816
  10. ACENOCOUMAROL [Interacting]
     Active Substance: ACENOCOUMAROL
     Indication: Embolism venous
     Dosage: 3 MG, QD
  11. ACENOCOUMAROL [Interacting]
     Active Substance: ACENOCOUMAROL
     Dosage: 5 MG, QD
     Dates: start: 20240819, end: 20240822
  12. ENOXAPARIN [Concomitant]
     Active Substance: ENOXAPARIN
     Indication: Embolism venous
     Dosage: UNK
     Dates: start: 20240822

REACTIONS (6)
  - Anticoagulation drug level below therapeutic [Recovered/Resolved]
  - Drug interaction [Recovered/Resolved]
  - Superficial vein thrombosis [Recovered/Resolved]
  - Thrombophlebitis [Recovered/Resolved]
  - Hyperchlorhydria [Unknown]
  - Chest pain [Recovered/Resolved]

NARRATIVE: CASE EVENT DATE: 20240515
